FAERS Safety Report 4867778-4 (Version None)
Quarter: 2005Q4

REPORT INFORMATION
  Report Type: 
  Country: None (occurrence: None)
  Receive Date: 20051227
  Receipt Date: 20051227
  Transmission Date: 20060501
  Serious: Yes (Disabling, Other)
  Sender: FDA-Public Use
  Company Number: None

PATIENT
  Age: 19 Year
  Sex: Male
  Weight: 70.3075 kg

DRUGS (1)
  1. ACCUTANE [Suspect]
     Indication: ACNE
     Dosage: 40 MG 2 X DAY MOUTH
     Route: 048
     Dates: start: 20010701, end: 20011101

REACTIONS (6)
  - ABNORMAL BEHAVIOUR [None]
  - BLOOD TRIGLYCERIDES INCREASED [None]
  - DIARRHOEA [None]
  - IMPAIRED WORK ABILITY [None]
  - PERFORMANCE STATUS DECREASED [None]
  - PSYCHOTIC DISORDER [None]
